FAERS Safety Report 17593244 (Version 1)
Quarter: 2020Q1

REPORT INFORMATION
  Report Type: Spontaneous
  Country: US (occurrence: US)
  Receive Date: 20200327
  Receipt Date: 20200327
  Transmission Date: 20200409
  Serious: No
  Sender: FDA-Public Use
  Company Number: US-TOPROL ACQUISITION LLC-2019-TOP-000495

PATIENT
  Sex: Female
  Weight: 147.39 kg

DRUGS (19)
  1. WARFARIN [Concomitant]
     Active Substance: WARFARIN
     Indication: HEART RATE IRREGULAR
     Dosage: 7.5 MG AT NIGHT
  2. FUROSEMIDE. [Concomitant]
     Active Substance: FUROSEMIDE
     Indication: OEDEMA PERIPHERAL
     Dosage: 40 MG (BUT IF TOO MUCH FLUID THEN TAKES 2 PER DAY)
     Route: 048
  3. VITAMIN B12 [Concomitant]
     Active Substance: CYANOCOBALAMIN
     Dosage: ONCE A WEEK
  4. VITAMIN D3 [Concomitant]
     Active Substance: CHOLECALCIFEROL
     Dosage: 2000 MG DAILY
  5. METFORMIN [Concomitant]
     Active Substance: METFORMIN HYDROCHLORIDE
     Indication: DIABETES MELLITUS
     Dosage: 1000 MG, BID
     Route: 048
  6. PRAVASTATIN. [Concomitant]
     Active Substance: PRAVASTATIN
     Indication: HYPERCHOLESTEROLAEMIA
     Dosage: 80 MG AT NIGHT
  7. CALCIUM [Concomitant]
     Active Substance: CALCIUM
     Dosage: 600 MG TWO TIMES A DAY
  8. POTASSIUM [Concomitant]
     Active Substance: POTASSIUM
     Dosage: AS REQUIRED WHEN SHE TAKES 2 WATER PILLS A DAY
  9. BYDUREON [Concomitant]
     Active Substance: EXENATIDE
     Indication: GLYCOSYLATED HAEMOGLOBIN INCREASED
     Dosage: 2 MG ONCE A WEEK
     Route: 058
     Dates: start: 2018
  10. GABAPENTIN. [Concomitant]
     Active Substance: GABAPENTIN
     Indication: NEUROPATHY PERIPHERAL
     Dosage: 600 MG THREE TIMES A DAY
     Route: 048
  11. MELATONIN [Concomitant]
     Active Substance: MELATONIN
     Dosage: 1 MG, QD
  12. CARTIA XT [Suspect]
     Active Substance: DILTIAZEM HYDROCHLORIDE
     Indication: HEART RATE INCREASED
     Dosage: 120 MG DAILY AT NIGHT
     Dates: start: 20190602
  13. METOPROLOL SUCCINATE. [Suspect]
     Active Substance: METOPROLOL SUCCINATE
     Indication: HEART RATE IRREGULAR
     Dosage: 100 MG DAILY
     Route: 048
     Dates: end: 20190601
  14. IRBESARTAN. [Concomitant]
     Active Substance: IRBESARTAN
     Indication: HEART RATE IRREGULAR
     Dosage: 300 MG, QD
     Dates: end: 20190601
  15. IRBESARTAN. [Concomitant]
     Active Substance: IRBESARTAN
     Dosage: 150 MG, QD
     Dates: start: 20190602
  16. LANTUS [Concomitant]
     Active Substance: INSULIN GLARGINE
     Dosage: 38 IU TWO TIMES A DAY
  17. METOPROLOL SUCCINATE. [Suspect]
     Active Substance: METOPROLOL SUCCINATE
     Dosage: UNK, BID
     Dates: start: 20190602
  18. TART CHERRY EXTRACT [Concomitant]
     Dosage: 1000 MG AT NIGHT
  19. ZADITOR [Concomitant]
     Active Substance: KETOTIFEN FUMARATE
     Dosage: UNK, BID
     Route: 047

REACTIONS (2)
  - Inappropriate schedule of product administration [Unknown]
  - Off label use [Unknown]
